FAERS Safety Report 8811300 (Version 1)
Quarter: 2012Q4

REPORT INFORMATION
  Report Type: 
  Country: US (occurrence: US)
  Receive Date: 20120927
  Receipt Date: 20120927
  Transmission Date: 20130627
  Serious: Yes (Other)
  Sender: FDA-Public Use
  Company Number: US-ELI_LILLY_AND_COMPANY-US201209004277

PATIENT
  Sex: Female

DRUGS (18)
  1. PROZAC [Suspect]
     Indication: DEPRESSION
     Dosage: 20 mg, qd
     Dates: start: 20100121, end: 20100127
  2. PROZAC [Suspect]
     Dosage: 40 mg, UNK
     Dates: start: 20110329
  3. PROZAC [Suspect]
     Dosage: 60 mg, UNK
     Dates: start: 20110503
  4. CYMBALTA [Suspect]
     Dosage: 90 mg, qd
  5. CYMBALTA [Suspect]
     Dosage: 60 mg, qd
  6. CYMBALTA [Suspect]
     Dosage: 30 mg, qd
  7. EFFEXOR XR [Concomitant]
     Dosage: 150 mg, UNK
  8. METFORMIN [Concomitant]
     Dosage: 500 mg, bid
  9. SINGULAIR [Concomitant]
     Dosage: 10 mg, UNK
  10. ESTER-C [Concomitant]
  11. FISH OIL [Concomitant]
  12. ASA [Concomitant]
  13. LEVOXYL [Concomitant]
     Dosage: .137 ml, UNK
  14. FEOSOL [Concomitant]
  15. PRISTIQ [Concomitant]
     Dosage: 100 mg, qd
  16. WELCHOL [Concomitant]
     Indication: BLOOD CHOLESTEROL
  17. VITAMIN D [Concomitant]
  18. MIRALAX [Concomitant]

REACTIONS (16)
  - Hysterectomy [Unknown]
  - Bladder repair [Unknown]
  - Vaginal operation [Unknown]
  - Non-cardiac chest pain [Unknown]
  - Empty sella syndrome [Unknown]
  - Rectocele [Unknown]
  - Rectal fissure [Unknown]
  - Hypothyroidism [Unknown]
  - Polycystic ovaries [Unknown]
  - Wisdom teeth removal [Unknown]
  - Tonsillectomy [Unknown]
  - Diabetes mellitus [Unknown]
  - Blood cholesterol increased [Unknown]
  - Hypersomnia [Unknown]
  - Exposure during pregnancy [Unknown]
  - Nystagmus [Recovered/Resolved]
